FAERS Safety Report 12119747 (Version 4)
Quarter: 2017Q1

REPORT INFORMATION
  Report Type: Spontaneous
  Country: US (occurrence: CN)
  Receive Date: 20160226
  Receipt Date: 20170302
  Transmission Date: 20170428
  Serious: Yes (Hospitalization, Disabling, Other)
  Sender: FDA-Public Use
  Company Number: US-JNJFOC-20160220895

PATIENT
  Age: 77 Year
  Sex: Male
  Weight: 86.18 kg

DRUGS (4)
  1. XARELTO [Suspect]
     Active Substance: RIVAROXABAN
     Indication: CEREBROVASCULAR ACCIDENT PROPHYLAXIS
     Dosage: START TIME: 8 PM??STOP TIME: 8 PM
     Route: 048
     Dates: start: 20151202, end: 20151203
  2. XARELTO [Suspect]
     Active Substance: RIVAROXABAN
     Indication: THROMBOSIS
     Dosage: START TIME: 8 PM??STOP TIME: 8 PM
     Route: 048
     Dates: start: 20151202, end: 20151203
  3. ASPIRIN. [Suspect]
     Active Substance: ASPIRIN
     Indication: PRODUCT USED FOR UNKNOWN INDICATION
     Route: 065
  4. XARELTO [Suspect]
     Active Substance: RIVAROXABAN
     Indication: ATRIAL FIBRILLATION
     Dosage: START TIME: 8 PM??STOP TIME: 8 PM
     Route: 048
     Dates: start: 20151202, end: 20151203

REACTIONS (2)
  - Cerebrovascular accident [Recovering/Resolving]
  - Gastrointestinal haemorrhage [Recovering/Resolving]

NARRATIVE: CASE EVENT DATE: 20151205
